FAERS Safety Report 8106045 (Version 3)
Quarter: 2013Q4

REPORT INFORMATION
  Report Type: Spontaneous
  Country: US (occurrence: US)
  Receive Date: 20110825
  Receipt Date: 20131125
  Transmission Date: 20140711
  Serious: Yes (Hospitalization, Other)
  Sender: FDA-Public Use
  Company Number: US-BAYER-2011-075475

PATIENT
  Age: 18 Year
  Sex: Female
  Weight: 90.7 kg

DRUGS (18)
  1. YAZ [Suspect]
     Indication: PREMENSTRUAL SYNDROME
     Dosage: UNK
     Dates: start: 2008
  2. YAZ [Suspect]
     Indication: PREMENSTRUAL DYSPHORIC DISORDER
  3. YASMIN [Suspect]
     Indication: PREMENSTRUAL SYNDROME
     Dosage: UNK
     Dates: start: 2008
  4. YASMIN [Suspect]
     Indication: PREMENSTRUAL DYSPHORIC DISORDER
  5. TYLENOL [Concomitant]
     Indication: PAIN
     Dosage: 1 PILL
     Dates: start: 2008
  6. MOTRIN [Concomitant]
     Indication: PAIN
     Dosage: 1 PILL
     Dates: start: 2008
  7. RANITIDINE [Concomitant]
     Dosage: UNK
     Dates: start: 20060327
  8. CEPHALEXIN [Concomitant]
     Dosage: UNK
     Dates: start: 20060401
  9. COLDEX [CHLORPHENAM MAL,DEXTROMET HBR,GUAIF,PSEUDOEPH HCL] [Concomitant]
     Dosage: UNK
     Dates: start: 20060401
  10. BENADRYL [Concomitant]
     Dosage: UNK
     Dates: start: 20060327
  11. FLUCONAZOLE [Concomitant]
     Dosage: UNK
     Dates: start: 20060408
  12. PROPANOLOL [Concomitant]
     Dosage: UNK
     Dates: start: 20060429
  13. TOPAMAX [Concomitant]
     Dosage: UNK
     Dates: start: 20060513
  14. CODEINE W/PARACETAMOL [Concomitant]
     Dosage: UNK
     Dates: start: 20060526
  15. AMOXICILLIN [Concomitant]
     Dosage: UNK
     Dates: start: 20060526
  16. CLARITHROMYCIN [Concomitant]
     Dosage: UNK
     Dates: start: 20060526
  17. SULFAMETHOXAZOLE/TRIMETHOPRIM [Concomitant]
     Dosage: UNK
     Dates: start: 20060526
  18. PROMETHAZINE [Concomitant]
     Dosage: UNK
     Dates: start: 20060526

REACTIONS (4)
  - Gallbladder injury [None]
  - Cholecystitis [None]
  - Injury [None]
  - Anxiety [None]
